FAERS Safety Report 14727731 (Version 1)
Quarter: 2018Q2

REPORT INFORMATION
  Report Type: Report from Study
  Country: US (occurrence: US)
  Receive Date: 20180406
  Receipt Date: 20180406
  Transmission Date: 20180711
  Serious: No
  Sender: FDA-Public Use
  Company Number: PHEH2018US012998

PATIENT
  Sex: Male

DRUGS (1)
  1. SANDOSTATIN LAR DEPOT [Suspect]
     Active Substance: OCTREOTIDE ACETATE
     Indication: HYPERTHYROIDISM
     Dosage: 20 MG, Q4W
     Route: 030

REACTIONS (2)
  - Upper respiratory tract infection [Unknown]
  - Product use in unapproved indication [Unknown]
